FAERS Safety Report 8440724-2 (Version None)
Quarter: 2012Q2

REPORT INFORMATION
  Report Type: 
  Country: None (occurrence: None)
  Receive Date: 20120615
  Receipt Date: 20120606
  Transmission Date: 20120825
  Serious: Yes (Hospitalization)
  Sender: FDA-Public Use
  Company Number: US-JNJFOC-20120603312

PATIENT
  Sex: Female
  Weight: 108.86 kg

DRUGS (8)
  1. SIMPONI [Suspect]
     Indication: OSTEOARTHRITIS
     Route: 058
  2. FELDENE [Concomitant]
     Indication: ARTHRITIS
     Route: 048
  3. VERAPAMIL [Concomitant]
     Indication: BLOOD PRESSURE
     Route: 048
  4. SIMPONI [Suspect]
     Indication: RHEUMATOID ARTHRITIS
     Route: 058
  5. VITAMINS NOS [Concomitant]
     Indication: MEDICAL DIET
     Route: 048
  6. PRAVASTATIN [Concomitant]
     Indication: BLOOD CHOLESTEROL
     Route: 048
  7. ARAVA [Concomitant]
     Indication: ARTHRITIS
     Route: 048
  8. LISINOPRIL [Concomitant]
     Indication: BLOOD PRESSURE
     Route: 048

REACTIONS (3)
  - UMBILICAL HERNIA [None]
  - WOUND DEHISCENCE [None]
  - DRUG DOSE OMISSION [None]
